FAERS Safety Report 13540140 (Version 1)
Quarter: 2017Q2

REPORT INFORMATION
  Report Type: Spontaneous
  Country: US (occurrence: US)
  Receive Date: 20170512
  Receipt Date: 20170512
  Transmission Date: 20170830
  Serious: No
  Sender: FDA-Public Use
  Company Number: US-ASTRAZENECA-2017SE50295

PATIENT
  Sex: Male

DRUGS (1)
  1. NEXIUM 24HR [Suspect]
     Active Substance: ESOMEPRAZOLE MAGNESIUM
     Indication: GASTRIC HAEMORRHAGE
     Route: 048

REACTIONS (5)
  - Dysphagia [Unknown]
  - Product use issue [Unknown]
  - Product size issue [Unknown]
  - Product use complaint [Unknown]
  - Product use in unapproved indication [Unknown]
